FAERS Safety Report 8967870 (Version 1)
Quarter: 2012Q4

REPORT INFORMATION
  Report Type: Spontaneous
  Country: US (occurrence: None)
  Receive Date: 20121213
  Receipt Date: 20121213
  Transmission Date: 20130627
  Serious: Yes (Disabling)
  Sender: FDA-Public Use
  Company Number: None

PATIENT
  Age: 57 Year
  Sex: Male
  Weight: 84.37 kg

DRUGS (2)
  1. CIPROFLOXACIN [Suspect]
     Indication: PROSTATITIS
     Dates: start: 20061010, end: 20061110
  2. CIPROFLOXACIN [Suspect]
     Indication: PROSTATITIS
     Dates: start: 20080811, end: 20080911

REACTIONS (1)
  - Diplopia [None]
